FAERS Safety Report 7096775-6 (Version None)
Quarter: 2010Q4

REPORT INFORMATION
  Report Type: 
  Country: None (occurrence: None)
  Receive Date: 20101111
  Receipt Date: 20091123
  Transmission Date: 20110411
  Serious: No
  Sender: FDA-Public Use
  Company Number: US-KINGPHARMUSA00001-K200901471

PATIENT
  Sex: Female

DRUGS (1)
  1. FLECTOR [Suspect]
     Indication: PAIN IN EXTREMITY
     Dosage: 2  PATCHES, EVERY 12 HOURS
     Route: 061
     Dates: start: 20091118

REACTIONS (1)
  - DRUG INEFFECTIVE [None]
